FAERS Safety Report 14639185 (Version 1)
Quarter: 2018Q1

REPORT INFORMATION
  Report Type: Report from Study
  Country: JP (occurrence: JP)
  Receive Date: 20180315
  Receipt Date: 20180315
  Transmission Date: 20180509
  Serious: Yes (Death, Other)
  Sender: FDA-Public Use
  Company Number: JP-CIPLA LTD.-2018JP11880

PATIENT

DRUGS (2)
  1. TS-1 [Suspect]
     Active Substance: GIMERACIL\OTERACIL\TEGAFUR
     Indication: PANCREATIC CARCINOMA
     Dosage: UNK, BID, AFTER MEALS FROM THE EVENING OF DAY 1 TO THE MORNING OF DAY 15 EVERY 3 WEEKS
     Route: 048
  2. GEMCITABINE [Suspect]
     Active Substance: GEMCITABINE\GEMCITABINE HYDROCHLORIDE
     Indication: PANCREATIC CARCINOMA
     Dosage: 1000 MG/M2, ON DAY 8 AND 15
     Route: 065

REACTIONS (3)
  - Obstruction gastric [Unknown]
  - Tumour invasion [Unknown]
  - Aspiration [Fatal]
